FAERS Safety Report 6652164-7 (Version None)
Quarter: 2010Q1

REPORT INFORMATION
  Report Type: 
  Country: None (occurrence: None)
  Receive Date: 20100325
  Receipt Date: 20100316
  Transmission Date: 20100710
  Serious: Yes (Other)
  Sender: FDA-Public Use
  Company Number: US-BAXTER-2010BH004795

PATIENT
  Sex: Female

DRUGS (7)
  1. HEPARIN SODIUM INJECTION [Suspect]
     Indication: DRUG USE FOR UNKNOWN INDICATION
     Route: 042
     Dates: start: 20071019, end: 20071019
  2. HEPARIN SODIUM INJECTION [Suspect]
     Route: 042
     Dates: start: 20071019, end: 20071021
  3. HEPARIN SODIUM INJECTION [Suspect]
     Route: 042
     Dates: start: 20071019, end: 20071019
  4. HEPARIN SODIUM INJECTION [Suspect]
     Route: 042
     Dates: start: 20071019, end: 20071019
  5. HEPARIN SODIUM INJECTION [Suspect]
     Route: 042
     Dates: start: 20071019, end: 20071019
  6. VITAMIN TAB [Concomitant]
     Indication: DRUG USE FOR UNKNOWN INDICATION
     Route: 065
  7. EFFEXOR [Concomitant]
     Indication: DRUG USE FOR UNKNOWN INDICATION
     Route: 065

REACTIONS (12)
  - CARDIAC FAILURE [None]
  - CARDIAC FAILURE CONGESTIVE [None]
  - CARDIOMYOPATHY [None]
  - CONVULSION [None]
  - INFERTILITY FEMALE [None]
  - PERICARDIAL EFFUSION [None]
  - PRESYNCOPE [None]
  - PULMONARY OEDEMA [None]
  - RENAL FAILURE [None]
  - SYNCOPE [None]
  - URINARY INCONTINENCE [None]
  - VOMITING [None]
